FAERS Safety Report 9526605 (Version 2)
Quarter: 2014Q1

REPORT INFORMATION
  Report Type: Report from Study
  Country: US (occurrence: US)
  Receive Date: 20130916
  Receipt Date: 20140127
  Transmission Date: 20141002
  Serious: Yes (Other)
  Sender: FDA-Public Use
  Company Number: PHHY2013US100089

PATIENT
  Age: 74 Year
  Sex: Female

DRUGS (6)
  1. LUCENTIS [Suspect]
     Indication: AGE-RELATED MACULAR DEGENERATION
     Dosage: 0.5 MG, QMO  IN LEFT EYE
     Route: 031
  2. AVASTIN [Suspect]
     Indication: AGE-RELATED MACULAR DEGENERATION
     Dosage: 1.25 MG, UNK
  3. DIAZEPAM [Concomitant]
     Dosage: UNK UKN, UNK
  4. AMLODIPINE [Concomitant]
     Dosage: UNK UKN, UNK
  5. VITAMIN B12 [Concomitant]
  6. TEARS [Concomitant]
     Dosage: UNK UKN, UNK

REACTIONS (7)
  - Eye irritation [Unknown]
  - Visual impairment [Unknown]
  - Eye pain [Unknown]
  - Asthenopia [Unknown]
  - Vision blurred [Unknown]
  - Vitreous floaters [Unknown]
  - Photosensitivity reaction [Unknown]
